FAERS Safety Report 8090802-5 (Version None)
Quarter: 2012Q1

REPORT INFORMATION
  Report Type: 
  Country: None (occurrence: None)
  Receive Date: 20120125
  Receipt Date: 20120112
  Transmission Date: 20120608
  Serious: Yes (Disabling)
  Sender: FDA-Public Use
  Company Number: 2012-00049

PATIENT
  Age: 43 Year
  Sex: Male
  Weight: 145 kg

DRUGS (13)
  1. OMEPRAZOLE [Concomitant]
  2. QUININE (UNKNOWN) [Concomitant]
  3. THIAMINE + VITAMIN B SUBSTANCES (THIAMINE) (UNKNOWN) [Concomitant]
  4. CITALOPRAM HYDROBROMIDE [Concomitant]
  5. ACETAMINOPHEN [Concomitant]
  6. ASPIRIN [Concomitant]
  7. CEPHALEXIN [Suspect]
     Indication: PRODUCT USED FOR UNKNOWN INDICATION
     Dates: start: 20111230
  8. CANDESARTAN CILEXETIL [Concomitant]
  9. PREGABALIN (UNKNOWN) [Concomitant]
  10. TRAMADOL HCL [Concomitant]
  11. VITAMIN B SUBSTANCES (UNKNOWN) [Concomitant]
  12. ATORVASTATIN [Concomitant]
  13. HYDROCORTISONE (UNKNOWN) [Concomitant]

REACTIONS (7)
  - JOINT SWELLING [None]
  - OEDEMA PERIPHERAL [None]
  - RASH [None]
  - PHARYNGEAL OEDEMA [None]
  - DRUG HYPERSENSITIVITY [None]
  - PRURITUS [None]
  - DYSPNOEA [None]
